FAERS Safety Report 14693250 (Version 1)
Quarter: 2018Q1

REPORT INFORMATION
  Report Type: Spontaneous
  Country: DE (occurrence: DE)
  Receive Date: 20180329
  Receipt Date: 20180329
  Transmission Date: 20180509
  Serious: Yes (Hospitalization)
  Sender: FDA-Public Use
  Company Number: DE-DRREDDYS-GER/GER/18/0097217

PATIENT
  Age: 47 Year
  Sex: Female
  Weight: 73 kg

DRUGS (2)
  1. CIPROFLOXACIN. [Suspect]
     Active Substance: CIPROFLOXACIN
     Indication: ABDOMINAL INFECTION
     Dosage: 5 TAGE JE 2 TABLETTEN
     Route: 048
     Dates: start: 20140202
  2. CIPROFLOXACIN. [Suspect]
     Active Substance: CIPROFLOXACIN
     Indication: DRUG INTOLERANCE

REACTIONS (12)
  - Hypophagia [Recovered/Resolved]
  - Muscular weakness [Recovered/Resolved]
  - Panic attack [Recovered/Resolved]
  - Myalgia [Recovered/Resolved]
  - Dyspepsia [Recovered/Resolved]
  - Arrhythmia [Recovered/Resolved]
  - Anxiety [Recovered/Resolved]
  - Asthenia [Recovered/Resolved]
  - Arthralgia [Recovered/Resolved]
  - Dizziness [Recovered/Resolved]
  - Nausea [Recovered/Resolved]
  - Tendonitis [Recovered/Resolved]

NARRATIVE: CASE EVENT DATE: 20140209
